FAERS Safety Report 13433294 (Version 2)
Quarter: 2017Q2

REPORT INFORMATION
  Report Type: Spontaneous
  Country: PL (occurrence: PL)
  Receive Date: 20170412
  Receipt Date: 20170608
  Transmission Date: 20170830
  Serious: Yes (Other)
  Sender: FDA-Public Use
  Company Number: PL-PFIZER INC-2017139667

PATIENT
  Age: 69 Year
  Sex: Female

DRUGS (6)
  1. DOXORUBICIN HCL [Suspect]
     Active Substance: DOXORUBICIN HYDROCHLORIDE
     Indication: PLASMA CELL MYELOMA
     Dosage: 25 MG/M2, UNK (ON DAYS 1 AND 4)
     Route: 042
     Dates: start: 20140224
  2. DEXAMETHASONE. [Suspect]
     Active Substance: DEXAMETHASONE
     Dosage: 10 MG, CYCLIC (DAYS 1-4)
  3. BORTEZOMIB [Suspect]
     Active Substance: BORTEZOMIB
     Indication: PLASMA CELL MYELOMA
     Dosage: 1.3 MG/M2, CYCLIC (ON DAYS 1, 4, 8, AND 11)
     Route: 058
  4. DEXAMETHASONE. [Suspect]
     Active Substance: DEXAMETHASONE
     Indication: PLASMA CELL MYELOMA
     Dosage: 20 MG, CYCLIC (ON DAYS 1-4, 8-11 AND 15-18)
     Route: 048
     Dates: start: 20140224
  5. BORTEZOMIB [Suspect]
     Active Substance: BORTEZOMIB
     Dosage: 1 MG/M2, CYCLIC
     Dates: start: 20170224
  6. BORTEZOMIB [Suspect]
     Active Substance: BORTEZOMIB
     Dosage: 0.7 MG/M2, UNK (DAY 11)

REACTIONS (3)
  - Granulocytopenia [Recovered/Resolved]
  - Thrombocytopenia [Recovering/Resolving]
  - Pneumonia [Unknown]
